FAERS Safety Report 7935699-6 (Version None)
Quarter: 2011Q4

REPORT INFORMATION
  Report Type: 
  Country: None (occurrence: None)
  Receive Date: 20111121
  Receipt Date: 20111107
  Transmission Date: 20120403
  Serious: Yes (Other)
  Sender: FDA-Public Use
  Company Number: 2011P1010163

PATIENT
  Age: 73 Year
  Sex: Male

DRUGS (8)
  1. CALCIUM WITH VITAMIN D [Concomitant]
  2. VALPROIC ACID [Suspect]
     Indication: BIPOLAR DISORDER
     Dosage: 500 MG; BID;
  3. SERTRALINE HYDROCHLORIDE [Concomitant]
  4. OMEPRAZOLE [Concomitant]
  5. TERAZOSIN HCL [Concomitant]
  6. EPOETIN ALFA [Concomitant]
  7. FINASTERIDE [Concomitant]
  8. ASPIRIN [Concomitant]

REACTIONS (2)
  - NO THERAPEUTIC RESPONSE [None]
  - PANCYTOPENIA [None]
